FAERS Safety Report 7432260-7 (Version None)
Quarter: 2011Q2

REPORT INFORMATION
  Report Type: 
  Country: None (occurrence: None)
  Receive Date: 20110414
  Receipt Date: 20110328
  Transmission Date: 20111010
  Serious: Yes (Death)
  Sender: FDA-Public Use
  Company Number: 2011P1005471

PATIENT
  Age: 50 Year
  Sex: Male

DRUGS (5)
  1. DIAZEPAM [Suspect]
     Dosage: 5 MG TID;
  2. TRAZODONE HCL [Suspect]
     Dosage: 200 MG; HS;
  3. OXYCODONE HCL EXTENDED-RELEASE [Suspect]
     Indication: POST LAMINECTOMY SYNDROME
     Dosage: 200 MG QD;
  4. OXYCODONE HCL EXTENDED-RELEASE [Suspect]
     Indication: MYOFASCIAL PAIN SYNDROME
     Dosage: 200 MG QD;
  5. FLUOXETINE [Suspect]
     Dosage: 20 MG, QAM, 40 MG, QM, 60 MG, QAM;

REACTIONS (2)
  - TOXICITY TO VARIOUS AGENTS [None]
  - SUICIDE ATTEMPT [None]
